FAERS Safety Report 5897110-9 (Version None)
Quarter: 2008Q3

REPORT INFORMATION
  Report Type: 
  Country: None (occurrence: None)
  Receive Date: 20080924
  Receipt Date: 20080918
  Transmission Date: 20090109
  Serious: Yes (Other)
  Sender: FDA-Public Use
  Company Number: US-ASTRAZENECA-2008UW11283

PATIENT
  Age: 31 Year
  Sex: Female
  Weight: 77.1 kg

DRUGS (5)
  1. SEROQUEL [Suspect]
     Indication: DEPRESSION
     Dosage: 200MG, 300MG + 400MG
     Route: 048
     Dates: start: 20010401, end: 20070531
  2. GEODON [Concomitant]
     Dates: start: 20010101
  3. ZYPREXA [Concomitant]
     Dates: start: 20010101
  4. TRAZODONE HCL [Concomitant]
     Dates: start: 20050101, end: 20070101
  5. LEXAPRO [Concomitant]
     Dates: start: 20010101

REACTIONS (8)
  - BACK DISORDER [None]
  - BLOOD CHOLESTEROL INCREASED [None]
  - COLONIC POLYP [None]
  - DIABETES MELLITUS [None]
  - DIABETIC KETOACIDOSIS [None]
  - DIABETIC NEUROPATHY [None]
  - JOINT INJURY [None]
  - OBESITY [None]
